FAERS Safety Report 8244143-3 (Version None)
Quarter: 2012Q1

REPORT INFORMATION
  Report Type: 
  Country: None (occurrence: None)
  Receive Date: 20120309
  Receipt Date: 20100812
  Transmission Date: 20120608
  Serious: Yes (Other)
  Sender: FDA-Public Use
  Company Number: PHHY2010US45850

PATIENT
  Age: 37 Year
  Sex: Male

DRUGS (6)
  1. ACETAMINOPHEN [Concomitant]
  2. PROZAC [Concomitant]
  3. NAPROXEN (ALEVE) [Concomitant]
  4. DIURETICS (NOT INGREDIENTS/SUBSTANCES) [Concomitant]
  5. EXTAVIA [Suspect]
     Indication: MULTIPLE SCLEROSIS
     Dosage: 0.0625 MG, QOD, SUBCUTANEOUS
     Dates: start: 20100708
  6. CHANTIX [Concomitant]

REACTIONS (8)
  - HEADACHE [None]
  - FEELING JITTERY [None]
  - FATIGUE [None]
  - GAIT DISTURBANCE [None]
  - MULTIPLE SCLEROSIS RELAPSE [None]
  - FEELING ABNORMAL [None]
  - MUSCLE SPASMS [None]
  - MUSCULAR WEAKNESS [None]
